FAERS Safety Report 8561284-1 (Version None)
Quarter: 2012Q3

REPORT INFORMATION
  Report Type: 
  Country: None (occurrence: None)
  Receive Date: 20120802
  Receipt Date: 20120727
  Transmission Date: 20120928
  Serious: No
  Sender: FDA-Public Use
  Company Number: US-BAYER-2012-076883

PATIENT
  Age: 74 Year
  Sex: Male
  Weight: 86 kg

DRUGS (3)
  1. ALEVE (CAPLET) [Suspect]
     Indication: ARTHRITIS
     Dosage: 2 DF, QD
     Route: 048
     Dates: start: 20120501
  2. ASPIRIN [Suspect]
     Dosage: 1 DF, PRN
     Route: 048
  3. ASPIRIN [Concomitant]
     Dosage: 1 DF, QD
     Route: 048
     Dates: start: 20120601

REACTIONS (2)
  - NO ADVERSE EVENT [None]
  - DRUG INEFFECTIVE [None]
